FAERS Safety Report 10339765 (Version 3)
Quarter: 2014Q3

REPORT INFORMATION
  Report Type: Spontaneous
  Country: IL (occurrence: IL)
  Receive Date: 20140724
  Receipt Date: 20140911
  Transmission Date: 20150326
  Serious: Yes (Hospitalization)
  Sender: FDA-Public Use
  Company Number: IL-JNJFOC-20140711992

PATIENT
  Age: 11 Year
  Sex: Male
  Weight: 35 kg

DRUGS (1)
  1. CONCERTA [Suspect]
     Active Substance: METHYLPHENIDATE HYDROCHLORIDE
     Indication: PRODUCT USED FOR UNKNOWN INDICATION
     Route: 048

REACTIONS (5)
  - Cerebral infarction [Unknown]
  - Incorrect dose administered [Unknown]
  - Off label use [Unknown]
  - Drug effect decreased [Unknown]
  - Vasospasm [Recovered/Resolved]
